FAERS Safety Report 18710664 (Version 1)
Quarter: 2021Q1

REPORT INFORMATION
  Report Type: Report from Study
  Country: GB (occurrence: GB)
  Receive Date: 20210107
  Receipt Date: 20210107
  Transmission Date: 20210419
  Serious: Yes (Hospitalization, Other)
  Sender: FDA-Public Use
  Company Number: GB-JNJFOC-20210106964

PATIENT
  Age: 72 Year
  Sex: Male
  Weight: 124.9 kg

DRUGS (23)
  1. INFLUENZA VACCINE [Concomitant]
     Active Substance: INFLUENZA VIRUS VACCINE
     Dates: start: 20130412
  2. EPIMAX [Concomitant]
     Active Substance: MINERAL OIL\PARAFFIN
     Dates: start: 20201117
  3. STELARA [Suspect]
     Active Substance: USTEKINUMAB
     Indication: PSORIASIS
     Route: 058
     Dates: start: 20140919
  4. STELARA [Suspect]
     Active Substance: USTEKINUMAB
  5. VENTOLIN [Concomitant]
     Active Substance: ALBUTEROL SULFATE
     Dates: start: 20150415
  6. SOLPADOL [CODEINE PHOSPHATE;PARACETAMOL] [Concomitant]
     Dates: start: 20190823
  7. DOXAZOSINE [DOXAZOSIN MESILATE] [Concomitant]
     Dates: start: 20130108
  8. LANSOPRAZOLE. [Concomitant]
     Active Substance: LANSOPRAZOLE
     Dates: start: 20190823
  9. SIMVASTATIN. [Concomitant]
     Active Substance: SIMVASTATIN
     Dates: start: 20190823
  10. RAMIPRIL. [Concomitant]
     Active Substance: RAMIPRIL
     Dates: start: 20150815
  11. PREDNISOLONE. [Concomitant]
     Active Substance: PREDNISOLONE
     Dates: start: 20190823
  12. ADCAL [CARBAZOCHROME] [Concomitant]
     Active Substance: CARBAZOCHROME
     Dates: start: 20201030
  13. AMITRIPTYLINE [Concomitant]
     Active Substance: AMITRIPTYLINE
     Dates: start: 20151211
  14. ROSUVASTATIN. [Concomitant]
     Active Substance: ROSUVASTATIN
     Dates: start: 20151211
  15. FUROSEMIDE. [Concomitant]
     Active Substance: FUROSEMIDE
     Dates: start: 20201030
  16. COCODAMOL [Concomitant]
     Active Substance: ACETAMINOPHEN\CODEINE PHOSPHATE
     Dates: start: 20121207
  17. LEFLUNOMIDE. [Concomitant]
     Active Substance: LEFLUNOMIDE
     Dates: start: 20130117
  18. INFLUENZA VACCINE [Concomitant]
     Active Substance: INFLUENZA VIRUS VACCINE
     Dates: start: 20130915
  19. SULPHASALAZINE [Concomitant]
     Active Substance: SULFASALAZINE
     Dates: start: 20131025
  20. DIPROSALIC [Concomitant]
     Active Substance: BETAMETHASONE DIPROPIONATE
     Dates: start: 20201117
  21. NAPROXEN. [Concomitant]
     Active Substance: NAPROXEN
     Dates: start: 20150815
  22. TOFACITINIB [Concomitant]
     Active Substance: TOFACITINIB
     Dates: start: 20190823
  23. LERCANIDIPINE [Concomitant]
     Active Substance: LERCANIDIPINE
     Dates: start: 20190823

REACTIONS (2)
  - Thyroid mass [Not Recovered/Not Resolved]
  - Hepatic cyst [Not Recovered/Not Resolved]

NARRATIVE: CASE EVENT DATE: 20201015
